FAERS Safety Report 9602783 (Version 1)
Quarter: 2013Q4

REPORT INFORMATION
  Report Type: Spontaneous
  Country: US (occurrence: US)
  Receive Date: 20131007
  Receipt Date: 20131007
  Transmission Date: 20140711
  Serious: No
  Sender: FDA-Public Use
  Company Number: US-009507513-1310USA002449

PATIENT
  Sex: Male

DRUGS (2)
  1. MIRALAX [Suspect]
     Indication: PRODUCT USED FOR UNKNOWN INDICATION
     Dosage: UNK, QD
     Route: 048
     Dates: start: 201306, end: 201307
  2. MIRALAX [Suspect]
     Dosage: UNK, QOD
     Route: 048
     Dates: start: 201307

REACTIONS (5)
  - Abnormal faeces [Unknown]
  - Defaecation urgency [Unknown]
  - Faecal incontinence [Unknown]
  - Incorrect drug administration duration [Unknown]
  - Inappropriate schedule of drug administration [Unknown]
